FAERS Safety Report 4404254-7 (Version None)
Quarter: 2004Q3

REPORT INFORMATION
  Report Type: 
  Country: None (occurrence: None)
  Receive Date: 20040720
  Receipt Date: 20040708
  Transmission Date: 20050211
  Serious: Yes (Death, Other)
  Sender: FDA-Public Use
  Company Number: 083-20785-04070291 (0)

PATIENT
  Age: 65 Year
  Sex: Female

DRUGS (8)
  1. THALIDOMIDE - PHARMION (THALIDOMIDE) (CAPSULES) [Suspect]
     Indication: MULTIPLE MYELOMA
     Dosage: 100 MG, INCREASING QWK
  2. MELPHALAN (MELPHALAN) [Suspect]
     Indication: MULTIPLE MYELOMA
     Dosage: 0.20 MG/KG/DAY, X4 DAYS Q28 DAYS,
  3. CEFEPIME (CEFEPIME) [Concomitant]
  4. ERYTHROMYCIN (ERYTHROMCYIN) [Concomitant]
  5. OMEPRAZOLE [Concomitant]
  6. DIGOXIN [Concomitant]
  7. ERYTHROPOIETIN (ERYTHROPOIETIN) [Concomitant]
  8. TEICOPLANIN (TEICOPLANIN) [Concomitant]

REACTIONS (6)
  - BLOOD AMYLASE INCREASED [None]
  - DISEASE PROGRESSION [None]
  - HEPATIC NECROSIS [None]
  - HEPATITIS CHOLESTATIC [None]
  - HEPATITIS TOXIC [None]
  - INFECTION [None]
